FAERS Safety Report 16166205 (Version 1)
Quarter: 2019Q2

REPORT INFORMATION
  Report Type: Spontaneous
  Country: US (occurrence: US)
  Receive Date: 20190406
  Receipt Date: 20190406
  Transmission Date: 20190711
  Serious: Yes (Hospitalization)
  Sender: FDA-Public Use
  Company Number: US-TEVA-2010A-00070

PATIENT
  Age: 34 Year
  Sex: Female

DRUGS (12)
  1. QUETIAPINE. [Interacting]
     Active Substance: QUETIAPINE
     Route: 065
  2. VENLAFAXINE [Interacting]
     Active Substance: VENLAFAXINE HYDROCHLORIDE
     Indication: DEPRESSION
     Route: 065
  3. MIRTAZAPINE (WATSON LABORATORIES) [Suspect]
     Active Substance: MIRTAZAPINE
     Indication: MAJOR DEPRESSION
     Dosage: TABLET (ORALLY DISINTEGRATING)
     Route: 065
  4. PROPOFOL. [Concomitant]
     Active Substance: PROPOFOL
     Route: 065
  5. ISOFLURANE. [Concomitant]
     Active Substance: ISOFLURANE
     Route: 065
  6. VECURONIUM [Concomitant]
     Active Substance: VECURONIUM BROMIDE
     Route: 065
  7. ONDANSETRON [Concomitant]
     Active Substance: ONDANSETRON
     Route: 065
  8. NEOSTIGMINE. [Concomitant]
     Active Substance: NEOSTIGMINE METHYLSULFATE
     Route: 065
  9. GLYCOPYRROLATE. [Concomitant]
     Active Substance: GLYCOPYRROLATE
     Route: 065
  10. METHYLENE BLUE. [Interacting]
     Active Substance: METHYLENE BLUE
     Indication: PARATHYROIDECTOMY
     Dosage: 3 MG/KG DAILY;
     Route: 065
  11. MIDAZOLAM [Concomitant]
     Active Substance: MIDAZOLAM HYDROCHLORIDE
     Route: 065
  12. FENTANYL. [Concomitant]
     Active Substance: FENTANYL
     Route: 065

REACTIONS (2)
  - Encephalopathy [Recovered/Resolved]
  - Inhibitory drug interaction [Recovered/Resolved]

NARRATIVE: CASE EVENT DATE: 2007
